FAERS Safety Report 11626929 (Version 1)
Quarter: 2015Q4

REPORT INFORMATION
  Report Type: Spontaneous
  Country: None (occurrence: US)
  Receive Date: 20151013
  Receipt Date: 20151013
  Transmission Date: 20160304
  Serious: No
  Sender: FDA-Public Use
  Company Number: US-MATRIXX INITIATIVES, INC.-1042934

PATIENT
  Age: 57 Year
  Sex: Female
  Weight: 60 kg

DRUGS (1)
  1. ZICAM COLD REMEDY NASAL SWABS (ZINC) [Suspect]
     Active Substance: ZINC ACETATE\ZINC GLUCONATE
     Indication: NASOPHARYNGITIS
     Route: 045
     Dates: start: 20151009, end: 20151010

REACTIONS (1)
  - Anosmia [Not Recovered/Not Resolved]

NARRATIVE: CASE EVENT DATE: 20151010
